FAERS Safety Report 5116258-X (Version None)
Quarter: 2006Q3

REPORT INFORMATION
  Report Type: 
  Country: None (occurrence: None)
  Receive Date: 20060927
  Receipt Date: 20060922
  Transmission Date: 20061208
  Serious: Yes (Hospitalization)
  Sender: FDA-Public Use
  Company Number: IT-GLAXOSMITHKLINE-B0439598A

PATIENT
  Age: 50 Year
  Sex: Female

DRUGS (1)
  1. AUGMENTIN [Suspect]
     Indication: UPPER RESPIRATORY TRACT INFECTION
     Dosage: 1G PER DAY
     Route: 048
     Dates: start: 20060911, end: 20060911

REACTIONS (3)
  - GENERALISED OEDEMA [None]
  - PRURITUS GENERALISED [None]
  - URTICARIA [None]
